FAERS Safety Report 21916720 (Version 3)
Quarter: 2023Q1

REPORT INFORMATION
  Report Type: Report from Study
  Country: KR (occurrence: KR)
  Receive Date: 20230126
  Receipt Date: 20230228
  Transmission Date: 20230417
  Serious: Yes (Hospitalization)
  Sender: FDA-Public Use
  Company Number: KR-JNJFOC-20230142814

PATIENT
  Age: 39 Year
  Sex: Female
  Weight: 46.5 kg

DRUGS (17)
  1. AMIVANTAMAB [Suspect]
     Active Substance: AMIVANTAMAB
     Indication: Non-small cell lung cancer metastatic
     Dosage: MOST RECENT DOSE= 05-JAN-2023
     Route: 042
     Dates: start: 20210429
  2. TANTUM [BENZOCAINE;BENZYDAMINE HYDROCHLORIDE] [Concomitant]
     Indication: Prophylaxis
     Dosage: 1 (UNITS NOR PROVIDED)
     Route: 050
     Dates: start: 20210416
  3. LACTICARE HC [HYDROCORTISONE] [Concomitant]
     Indication: Dermatitis acneiform
     Dosage: 1 (UNITS NOT PROIVDED)
     Route: 061
     Dates: start: 20210525
  4. MINOCYCLINE HYDROCHLORIDE [Concomitant]
     Active Substance: MINOCYCLINE HYDROCHLORIDE
     Indication: Dermatitis acneiform
     Route: 048
     Dates: start: 20210819
  5. MINOCYCLINE HYDROCHLORIDE [Concomitant]
     Active Substance: MINOCYCLINE HYDROCHLORIDE
     Indication: Paronychia
  6. BEAROBAN [Concomitant]
     Indication: Paronychia
     Dosage: 1 (UNITS NOT PROVIDED)
     Route: 061
     Dates: start: 20210910
  7. DIFUCO [Concomitant]
     Indication: Paronychia
     Dosage: 1 (UNITS NOT PROVIDED)
     Route: 061
     Dates: start: 20220303
  8. POTASSIUM PERMANGANATE [Concomitant]
     Active Substance: POTASSIUM PERMANGANATE
     Indication: Paronychia
     Dosage: 1 (UNITS NOT PROVIDED)
     Route: 061
     Dates: start: 20220303
  9. OFLOXACIN [Concomitant]
     Active Substance: OFLOXACIN
     Indication: Paronychia
     Dosage: 1 (UNITS NOT PROVIDED)
     Route: 061
     Dates: start: 20220317
  10. CITOPCIN [CIPROFLOXACIN HYDROCHLORIDE] [Concomitant]
     Indication: Paronychia
     Route: 048
     Dates: start: 20220317
  11. NALOXONE HYDROCHLORIDE\OXYCODONE HYDROCHLORIDE [Concomitant]
     Active Substance: NALOXONE HYDROCHLORIDE\OXYCODONE HYDROCHLORIDE
     Indication: Musculoskeletal chest pain
     Dosage: CR 10/5
     Route: 048
     Dates: start: 20220414
  12. ULTRACET [Concomitant]
     Active Substance: ACETAMINOPHEN\TRAMADOL HYDROCHLORIDE
     Indication: Musculoskeletal chest pain
     Route: 048
     Dates: start: 20220428
  13. LIVACT [ISOLEUCINE;LEUCINE;VALINE] [Concomitant]
     Indication: Hypoalbuminaemia
     Route: 048
     Dates: start: 20220623
  14. COLCHIN [Concomitant]
     Indication: Prophylaxis
     Route: 048
     Dates: start: 20220724
  15. LASIX [Concomitant]
     Active Substance: FUROSEMIDE
     Indication: Pericardial effusion
     Route: 048
     Dates: start: 20220726
  16. LASIX [Concomitant]
     Active Substance: FUROSEMIDE
     Indication: Oedema peripheral
     Route: 048
     Dates: start: 20220726
  17. ANYFEN [Concomitant]
     Indication: Prophylaxis
     Route: 048
     Dates: start: 20220729

REACTIONS (1)
  - Venous thrombosis [Recovered/Resolved]

NARRATIVE: CASE EVENT DATE: 20230119
